FAERS Safety Report 9610637 (Version 1)
Quarter: 2013Q4

REPORT INFORMATION
  Report Type: Spontaneous
  Country: US (occurrence: US)
  Receive Date: 20131009
  Receipt Date: 20131009
  Transmission Date: 20140711
  Serious: No
  Sender: FDA-Public Use
  Company Number: US-BAYER-2013-120902

PATIENT
  Sex: Male

DRUGS (6)
  1. ALEVE CAPLET [Suspect]
     Dosage: UNK UNK, UNK
  2. IBUPROFEN [Concomitant]
  3. ADVIL [Concomitant]
  4. MOTRIN [Concomitant]
  5. NAPROXEN [Concomitant]
  6. CELEBREX [Concomitant]

REACTIONS (5)
  - Dyspepsia [None]
  - Abdominal discomfort [None]
  - Dyspepsia [None]
  - Abdominal pain upper [None]
  - Gastric disorder [None]
